FAERS Safety Report 9922979 (Version 1)
Quarter: 2014Q1

REPORT INFORMATION
  Report Type: Spontaneous
  Country: US (occurrence: US)
  Receive Date: 20140225
  Receipt Date: 20140225
  Transmission Date: 20141002
  Serious: No
  Sender: FDA-Public Use
  Company Number: US-009507513-1402USA010493

PATIENT
  Age: 26 Year
  Sex: Female
  Weight: 70.3 kg

DRUGS (2)
  1. NEXPLANON [Suspect]
     Indication: CONTRACEPTION
     Dosage: UNK
     Route: 059
  2. LEVOTHYROXINE SODIUM [Concomitant]

REACTIONS (1)
  - Vaginal discharge [Unknown]
